FAERS Safety Report 4481026-9 (Version None)
Quarter: 2004Q4

REPORT INFORMATION
  Report Type: 
  Country: None (occurrence: None)
  Receive Date: 20041020
  Receipt Date: 20041020
  Transmission Date: 20050328
  Serious: Yes (Death, Hospitalization)
  Sender: FDA-Public Use
  Company Number: None

PATIENT
  Age: 83 Year
  Sex: Female
  Weight: 86.1834 kg

DRUGS (4)
  1. BEXTRA [Suspect]
     Indication: ARTHRITIS
     Dosage: ONE QD 20 MG
     Dates: start: 20031102, end: 20031109
  2. PEPCID [Concomitant]
  3. ZOCOR [Concomitant]
  4. GLUCOSE [Concomitant]

REACTIONS (17)
  - ABASIA [None]
  - AURICULAR SWELLING [None]
  - BEDRIDDEN [None]
  - BLISTER [None]
  - BODY TEMPERATURE INCREASED [None]
  - CEREBROVASCULAR ACCIDENT [None]
  - CONFUSIONAL STATE [None]
  - DEHYDRATION [None]
  - DYSSTASIA [None]
  - EYE SWELLING [None]
  - GENERALISED OEDEMA [None]
  - MUCOUS MEMBRANE DISORDER [None]
  - RENAL FAILURE [None]
  - SKIN DESQUAMATION [None]
  - STAPHYLOCOCCAL SCALDED SKIN SYNDROME [None]
  - STAPHYLOCOCCAL SEPSIS [None]
  - URTICARIA [None]
